FAERS Safety Report 25191845 (Version 1)
Quarter: 2025Q2

REPORT INFORMATION
  Report Type: Spontaneous
  Country: ID (occurrence: ID)
  Receive Date: 20250414
  Receipt Date: 20250414
  Transmission Date: 20250717
  Serious: Yes (Other)
  Sender: ORGANON
  Company Number: ID-ORGANON-O2504IDN000929

PATIENT
  Age: 31 Year
  Sex: Female

DRUGS (2)
  1. ETONOGESTREL [Interacting]
     Active Substance: ETONOGESTREL
     Route: 059
     Dates: start: 202211
  2. PHENYTOIN [Interacting]
     Active Substance: PHENYTOIN
     Indication: Post stroke seizure

REACTIONS (5)
  - Pregnancy with implant contraceptive [Unknown]
  - Unintended pregnancy [Unknown]
  - Post stroke seizure [Unknown]
  - Drug interaction [Unknown]
  - Treatment failure [Unknown]
